FAERS Safety Report 8525735-0 (Version None)
Quarter: 2012Q3

REPORT INFORMATION
  Report Type: 
  Country: None (occurrence: None)
  Receive Date: 20120720
  Receipt Date: 20120716
  Transmission Date: 20120928
  Serious: Yes (Disabling, Other)
  Sender: FDA-Public Use
  Company Number: US-009507513-1103USA03954

PATIENT

DRUGS (6)
  1. VITAMIN D (UNSPECIFIED) [Concomitant]
     Indication: OSTEOPOROSIS
     Dosage: 400 IU, QD
  2. FOSAMAX [Suspect]
     Indication: OSTEOPOROSIS
     Dosage: 70 MG, QW
     Route: 048
     Dates: start: 20010901, end: 20100901
  3. BONIVA [Concomitant]
     Indication: OSTEOPOROSIS
     Dosage: 150 MG, QM
     Dates: start: 20080925
  4. CALCIUM (UNSPECIFIED) [Concomitant]
     Indication: OSTEOPOROSIS
     Dosage: 600 MG, BID
  5. FOSAMAX [Suspect]
     Dosage: 70 MG, UNK
     Route: 048
     Dates: start: 20080721, end: 20100818
  6. FOSAMAX PLUS D [Suspect]
     Indication: OSTEOPOROSIS
     Dosage: 70 MG, QW
     Route: 048
     Dates: start: 20010901, end: 20100901

REACTIONS (38)
  - RADIUS FRACTURE [None]
  - MUSCULOSKELETAL DISORDER [None]
  - NEOPLASM [None]
  - FOOT DEFORMITY [None]
  - LUMBAR SPINAL STENOSIS [None]
  - LUMBAR RADICULOPATHY [None]
  - SPINAL OSTEOARTHRITIS [None]
  - PERONEAL NERVE PALSY [None]
  - INTERVERTEBRAL DISC DEGENERATION [None]
  - SCAR [None]
  - MUSCULAR WEAKNESS [None]
  - ADVERSE DRUG REACTION [None]
  - URINARY TRACT INFECTION [None]
  - ESSENTIAL HYPERTENSION [None]
  - NEPHROLITHIASIS [None]
  - ARTHROPATHY [None]
  - CYSTITIS [None]
  - DYSAESTHESIA [None]
  - GASTROOESOPHAGEAL REFLUX DISEASE [None]
  - FALL [None]
  - PARAESTHESIA [None]
  - PAIN IN EXTREMITY [None]
  - VISUAL IMPAIRMENT [None]
  - ONYCHOMYCOSIS [None]
  - DRUG HYPERSENSITIVITY [None]
  - FEMUR FRACTURE [None]
  - TENDON DISORDER [None]
  - HYPERKERATOSIS [None]
  - SPINAL COMPRESSION FRACTURE [None]
  - OEDEMA PERIPHERAL [None]
  - ARTHRALGIA [None]
  - BACK PAIN [None]
  - BUNION [None]
  - INTERVERTEBRAL DISC PROTRUSION [None]
  - HYPERTROPHY [None]
  - INTERVERTEBRAL DISC SPACE NARROWING [None]
  - HAEMATURIA [None]
  - NAUSEA [None]
